FAERS Safety Report 5416856-X (Version None)
Quarter: 2007Q3

REPORT INFORMATION
  Report Type: 
  Country: None (occurrence: None)
  Receive Date: 20070718
  Receipt Date: 20060607
  Transmission Date: 20080115
  Serious: Yes (Hospitalization)
  Sender: FDA-Public Use
  Company Number: 2006057799

PATIENT
  Age: 65 Year
  Sex: Female
  Weight: 116.5744 kg

DRUGS (2)
  1. CELEBREX [Suspect]
     Indication: OSTEOARTHRITIS
     Dosage: 400 MG (200 MG, 2 IN 1 D)
     Dates: start: 19990817, end: 20000501
  2. TENORMIN [Concomitant]

REACTIONS (1)
  - MYOCARDIAL INFARCTION [None]
